FAERS Safety Report 10560895 (Version 1)
Quarter: 2014Q4

REPORT INFORMATION
  Report Type: Spontaneous
  Country: IN (occurrence: IN)
  Receive Date: 20141103
  Receipt Date: 20141103
  Transmission Date: 20150529
  Serious: Yes (Other)
  Sender: FDA-Public Use
  Company Number: PHHY2014IN140874

PATIENT
  Age: 36 Year
  Sex: Male

DRUGS (6)
  1. HALOPERIDOL. [Suspect]
     Active Substance: HALOPERIDOL
     Indication: CHOREA
     Dosage: 0.5 MG, TID
     Route: 065
  2. HALOPERIDOL. [Suspect]
     Active Substance: HALOPERIDOL
     Dosage: 2 MG, TID
  3. SULFADIAZINE. [Concomitant]
     Active Substance: SULFADIAZINE
     Indication: TOXOPLASMOSIS
     Route: 065
  4. VALPROIC ACID. [Suspect]
     Active Substance: VALPROIC ACID
     Indication: EPILEPSY
     Dosage: 500 MG, TID
  5. LORAZEPAM. [Concomitant]
     Active Substance: LORAZEPAM
     Indication: EPILEPSY
     Route: 042
  6. TETRABENAZINE [Concomitant]
     Active Substance: TETRABENAZINE
     Indication: CHOREA
     Dosage: 25 MG, TID
     Route: 065

REACTIONS (3)
  - Therapeutic response decreased [Unknown]
  - Hepatitis [Recovered/Resolved]
  - Drug ineffective [Unknown]
